FAERS Safety Report 4587870-1 (Version None)
Quarter: 2005Q1

REPORT INFORMATION
  Report Type: 
  Country: None (occurrence: None)
  Receive Date: 20050125
  Receipt Date: 20040831
  Transmission Date: 20050727
  Serious: No
  Sender: FDA-Public Use
  Company Number: USA040977060

PATIENT
  Sex: Female

DRUGS (4)
  1. FORTEO [Suspect]
     Dates: end: 20040801
  2. ACTONEL [Concomitant]
  3. CALCIUM GLUCONATE [Concomitant]
  4. VITAMIN D [Concomitant]

REACTIONS (2)
  - BACK PAIN [None]
  - PAIN [None]
